FAERS Safety Report 13415122 (Version 3)
Quarter: 2017Q2

REPORT INFORMATION
  Report Type: Spontaneous
  Country: ZA (occurrence: ZA)
  Receive Date: 20170407
  Receipt Date: 20170418
  Transmission Date: 20170830
  Serious: Yes (Death, Life-Threatening, Hospitalization, Other)
  Sender: FDA-Public Use
  Company Number: ZA-DRREDDYS-USA/SAF/17/0088511

PATIENT
  Age: 37 Year
  Sex: Female

DRUGS (7)
  1. PYRAZINAMIDE. [Suspect]
     Active Substance: PYRAZINAMIDE
     Indication: TUBERCULOSIS
     Route: 065
  2. ETHAMBUTOL [Suspect]
     Active Substance: ETHAMBUTOL HYDROCHLORIDE
     Indication: TUBERCULOSIS
     Route: 065
  3. ETHIONAMIDE [Suspect]
     Active Substance: ETHIONAMIDE
     Indication: TUBERCULOSIS
     Route: 065
  4. ISONIAZID. [Suspect]
     Active Substance: ISONIAZID
     Indication: TUBERCULOSIS
     Route: 065
  5. KANAMYCIN [Suspect]
     Active Substance: KANAMYCIN\KANAMYCIN A SULFATE
     Indication: TUBERCULOSIS
     Route: 065
     Dates: end: 201507
  6. MOXIFLOXACIN. [Suspect]
     Active Substance: MOXIFLOXACIN
     Indication: TUBERCULOSIS
     Route: 065
  7. TERIZIDONE [Suspect]
     Active Substance: TERIZIDONE
     Indication: TUBERCULOSIS
     Route: 065

REACTIONS (11)
  - Lung disorder [Unknown]
  - Critical illness [Unknown]
  - Weight decreased [Unknown]
  - Tuberculosis [Unknown]
  - Treatment noncompliance [Unknown]
  - Condition aggravated [Unknown]
  - Drug ineffective [Unknown]
  - Weight increased [Unknown]
  - Death [Fatal]
  - Off label use [Unknown]
  - Hypothyroidism [Unknown]

NARRATIVE: CASE EVENT DATE: 201502
